FAERS Safety Report 7603675-9 (Version None)
Quarter: 2011Q3

REPORT INFORMATION
  Report Type: 
  Country: None (occurrence: None)
  Receive Date: 20110712
  Receipt Date: 20110706
  Transmission Date: 20111222
  Serious: No
  Sender: FDA-Public Use
  Company Number: US-PFIZER INC-2011152878

PATIENT
  Sex: Male

DRUGS (1)
  1. SUTENT [Suspect]
     Indication: RENAL CELL CARCINOMA
     Dosage: UNK

REACTIONS (6)
  - RENAL CELL CARCINOMA [None]
  - DISEASE PROGRESSION [None]
  - MUSCLE SPASMS [None]
  - DIARRHOEA [None]
  - INSOMNIA [None]
  - FATIGUE [None]
